FAERS Safety Report 5258964-2 (Version None)
Quarter: 2007Q1

REPORT INFORMATION
  Report Type: 
  Country: None (occurrence: None)
  Receive Date: 20061217
  Receipt Date: 20051109
  Transmission Date: 20070707
  Serious: Yes (Other)
  Sender: FDA-Public Use
  Company Number: US-JNJFOC-20051004707

PATIENT
  Age: 80 Year
  Sex: Male

DRUGS (6)
  1. LEVAQUIN [Suspect]
     Indication: SINUSITIS
     Dosage: 1 IN 1 DAY, ORAL
     Route: 048
     Dates: start: 20050301, end: 20050301
  2. COUMADIN [Suspect]
     Indication: ATRIAL FIBRILLATION
  3. TOPROL-XL [Concomitant]
  4. LASIX [Concomitant]
  5. VASOTEC [Concomitant]
  6. DIGOXIN [Concomitant]

REACTIONS (3)
  - DRUG INTERACTION [None]
  - HAEMATOMA [None]
  - INTERNATIONAL NORMALISED RATIO [None]
